FAERS Safety Report 8606824-9 (Version None)
Quarter: 2012Q3

REPORT INFORMATION
  Report Type: 
  Country: None (occurrence: None)
  Receive Date: 20120820
  Receipt Date: 20120813
  Transmission Date: 20120928
  Serious: Yes (Hospitalization, Other)
  Sender: FDA-Public Use
  Company Number: JP-ROCHE-1073276

PATIENT
  Sex: Female

DRUGS (7)
  1. FAMOTIDINE [Concomitant]
     Route: 048
  2. ACTEMRA [Suspect]
     Indication: RHEUMATOID ARTHRITIS
     Dosage: DOSAGE IS UNCERTAIN.
     Route: 041
     Dates: start: 20100908, end: 20120101
  3. AMARYL [Concomitant]
     Route: 048
  4. TORSEMIDE [Concomitant]
     Route: 048
  5. ISOSORBIDE MONONITRATE [Concomitant]
     Route: 048
  6. MUCOSOLVAN [Concomitant]
     Route: 048
  7. DIGOXIN [Concomitant]
     Route: 048

REACTIONS (4)
  - FALL [None]
  - FRACTURE [None]
  - POST PROCEDURAL INFECTION [None]
  - DRUG ERUPTION [None]
